FAERS Safety Report 8133502-5 (Version None)
Quarter: 2012Q1

REPORT INFORMATION
  Report Type: 
  Country: None (occurrence: None)
  Receive Date: 20120213
  Receipt Date: 20120206
  Transmission Date: 20120608
  Serious: Yes (Hospitalization)
  Sender: FDA-Public Use
  Company Number: US-ABBOTT-12P-163-0902112-00

PATIENT
  Sex: Female
  Weight: 68.1 kg

DRUGS (5)
  1. AMITRIPTYLINE HCL [Concomitant]
     Indication: SLEEP DISORDER THERAPY
  2. VITAMIN D [Concomitant]
     Indication: HYPOVITAMINOSIS
  3. HUMIRA [Suspect]
     Dates: start: 20120124, end: 20120124
  4. HUMIRA [Suspect]
     Indication: LEUKOCYTOCLASTIC VASCULITIS
     Dates: start: 20120107
  5. HUMIRA [Suspect]
     Indication: CROHN'S DISEASE
     Dates: start: 20120110, end: 20120110

REACTIONS (8)
  - CROHN'S DISEASE [None]
  - GINGIVAL BLEEDING [None]
  - PALPITATIONS [None]
  - PRESYNCOPE [None]
  - HYPERTENSION [None]
  - OFF LABEL USE [None]
  - RECTAL HAEMORRHAGE [None]
  - LEUKOCYTOCLASTIC VASCULITIS [None]
